FAERS Safety Report 22869530 (Version 4)
Quarter: 2023Q4

REPORT INFORMATION
  Report Type: Spontaneous
  Country: US (occurrence: US)
  Receive Date: 20230826
  Receipt Date: 20231007
  Transmission Date: 20240110
  Serious: No
  Sender: FDA-Public Use
  Company Number: US-UNITED THERAPEUTICS-UNT-2023-018755

PATIENT
  Sex: Female

DRUGS (7)
  1. TYVASO DPI [Suspect]
     Active Substance: TREPROSTINIL
     Indication: Pulmonary arterial hypertension
     Dosage: 48 ?G, QID
  2. TYVASO DPI [Suspect]
     Active Substance: TREPROSTINIL
     Dosage: 32 ?G (DOSE DECREASED)
  3. TYVASO DPI [Suspect]
     Active Substance: TREPROSTINIL
     Dosage: 16 ?G, TID (FREQUENCY CHANGE PER PHYSICIAN)
  4. TYVASO DPI [Suspect]
     Active Substance: TREPROSTINIL
     Dosage: UNK
     Dates: start: 20221228, end: 20230918
  5. TYVASO DPI [Suspect]
     Active Substance: TREPROSTINIL
     Indication: Pulmonary arterial hypertension
     Dosage: UNK
  6. TYVASO DPI [Suspect]
     Active Substance: TREPROSTINIL
     Indication: Pulmonary arterial hypertension
     Dosage: UNK
  7. TYVASO DPI [Suspect]
     Active Substance: TREPROSTINIL
     Indication: Pulmonary arterial hypertension
     Dosage: UNK

REACTIONS (4)
  - Pulmonary arterial pressure increased [Not Recovered/Not Resolved]
  - Dyspnoea [Not Recovered/Not Resolved]
  - Condition aggravated [Not Recovered/Not Resolved]
  - Therapy non-responder [Unknown]

NARRATIVE: CASE EVENT DATE: 20230101
